FAERS Safety Report 16449063 (Version 10)
Quarter: 2019Q3

REPORT INFORMATION
  Report Type: Report from Study
  Country: CA (occurrence: CA)
  Receive Date: 20190619
  Receipt Date: 20190820
  Transmission Date: 20191004
  Serious: No
  Sender: FDA-Public Use
  Company Number: CA-BEH-2019102826

PATIENT
  Age: 33 Year
  Sex: Male

DRUGS (16)
  1. BERINERT [Suspect]
     Active Substance: HUMAN C1-ESTERASE INHIBITOR
     Dosage: 1500 INTERNATIONAL UNIT, EVERY FOUR DAYS
     Route: 042
     Dates: start: 20190527, end: 20190527
  2. BERINERT [Suspect]
     Active Substance: HUMAN C1-ESTERASE INHIBITOR
     Dosage: 3000 INTERNATIONAL UNIT, TOT
     Route: 058
     Dates: start: 20190627, end: 20190627
  3. BERINERT [Suspect]
     Active Substance: HUMAN C1-ESTERASE INHIBITOR
     Dosage: 4500 INTERNATIONAL UNIT (3000 IU ONE TIME AND 1500 IU THE NEXT), QW
     Route: 058
     Dates: start: 20190513
  4. FIRAZYR [Concomitant]
     Active Substance: ICATIBANT ACETATE
  5. BERINERT [Suspect]
     Active Substance: HUMAN C1-ESTERASE INHIBITOR
     Dosage: 1500 INTERNATIONAL UNIT, EVERY FOUR DAYS
     Route: 042
     Dates: start: 20190527, end: 20190527
  6. BERINERT [Suspect]
     Active Substance: HUMAN C1-ESTERASE INHIBITOR
     Dosage: 3000 INTERNATIONAL UNIT, BIW
     Route: 058
     Dates: start: 20190513
  7. BERINERT [Suspect]
     Active Substance: HUMAN C1-ESTERASE INHIBITOR
     Dosage: 3000 INTERNATIONAL UNIT, BIW
     Route: 058
     Dates: start: 20190513
  8. BERINERT [Suspect]
     Active Substance: HUMAN C1-ESTERASE INHIBITOR
     Dosage: 3000 INTERNATIONAL UNIT, TOT
     Route: 058
     Dates: start: 20190627, end: 20190627
  9. BERINERT [Suspect]
     Active Substance: HUMAN C1-ESTERASE INHIBITOR
     Indication: HEREDITARY ANGIOEDEMA WITH C1 ESTERASE INHIBITOR DEFICIENCY
     Dosage: 1000 IU, BIW
     Route: 042
     Dates: start: 20190513
  10. BERINERT [Suspect]
     Active Substance: HUMAN C1-ESTERASE INHIBITOR
     Indication: PROPHYLAXIS
     Dosage: 1000 IU, TOT
     Route: 042
     Dates: start: 201905, end: 201905
  11. BERINERT [Suspect]
     Active Substance: HUMAN C1-ESTERASE INHIBITOR
     Dosage: 1500 INTERNATIONAL UNIT, EVERY FOUR DAYS
     Route: 042
     Dates: start: 20190513
  12. CYCLOMEN [Concomitant]
     Active Substance: DANAZOL
  13. BERINERT [Suspect]
     Active Substance: HUMAN C1-ESTERASE INHIBITOR
     Indication: HEREDITARY ANGIOEDEMA WITH C1 ESTERASE INHIBITOR DEFICIENCY
     Dosage: 1000 IU, BIW
     Route: 042
     Dates: start: 20190513
  14. BERINERT [Suspect]
     Active Substance: HUMAN C1-ESTERASE INHIBITOR
     Indication: PROPHYLAXIS
     Dosage: 1000 IU, TOT
     Route: 042
     Dates: start: 201905, end: 201905
  15. BERINERT [Suspect]
     Active Substance: HUMAN C1-ESTERASE INHIBITOR
     Dosage: 1500 INTERNATIONAL UNIT, EVERY FOUR DAYS
     Route: 042
     Dates: start: 20190513
  16. BERINERT [Suspect]
     Active Substance: HUMAN C1-ESTERASE INHIBITOR
     Dosage: 4500 INTERNATIONAL UNIT (3000 IU ONE TIME AND 1500 IU THE NEXT), QW
     Route: 058
     Dates: start: 20190513

REACTIONS (16)
  - Anxiety [Unknown]
  - Product administration error [Unknown]
  - Intercepted medication error [Unknown]
  - Abdominal pain [Recovered/Resolved]
  - Inappropriate schedule of product administration [Unknown]
  - No adverse event [Unknown]
  - Distractibility [Unknown]
  - Headache [Recovered/Resolved]
  - Product dose omission [Unknown]
  - Off label use [Unknown]
  - Aggression [Not Recovered/Not Resolved]
  - Diarrhoea [Recovered/Resolved with Sequelae]
  - Abdominal pain [Recovered/Resolved]
  - Intentional product use issue [Unknown]
  - Fatigue [Not Recovered/Not Resolved]
  - Diarrhoea [Recovered/Resolved with Sequelae]

NARRATIVE: CASE EVENT DATE: 2019
